FAERS Safety Report 9129640 (Version 3)
Quarter: 2013Q2

REPORT INFORMATION
  Report Type: Spontaneous
  Country: FR (occurrence: FR)
  Receive Date: 20130228
  Receipt Date: 20130416
  Transmission Date: 20140414
  Serious: Yes (Other)
  Sender: FDA-Public Use
  Company Number: FR-ALLERGAN-1300900US

PATIENT
  Age: 53 Year
  Sex: Female
  Weight: 50 kg

DRUGS (6)
  1. VISTABEL [Suspect]
     Indication: SKIN WRINKLING
     Dosage: 58 UNITS, SINGLE
     Dates: start: 20120910, end: 20120910
  2. VISTABEL [Suspect]
     Indication: SKIN WRINKLING
     Dosage: UNK, SINGLE
     Dates: start: 20120924, end: 20120924
  3. VISTABEL [Suspect]
     Indication: SKIN WRINKLING
     Dosage: UNK
     Dates: start: 20120413, end: 20120413
  4. VISTABEL [Suspect]
     Dosage: UNK
     Dates: start: 20120521, end: 20120521
  5. VISTABEL [Suspect]
     Dosage: UNK
     Dates: start: 20110508, end: 20110508
  6. VISTABEL [Suspect]
     Dosage: UNK
     Dates: start: 20100406, end: 20100406

REACTIONS (2)
  - Granuloma [Not Recovered/Not Resolved]
  - Drug ineffective [Unknown]
